FAERS Safety Report 10658706 (Version 1)
Quarter: 2014Q4

REPORT INFORMATION
  Report Type: Spontaneous
  Country: US (occurrence: None)
  Receive Date: 20141216
  Receipt Date: 20141216
  Transmission Date: 20150529
  Serious: No
  Sender: FDA-Public Use
  Company Number: None

PATIENT
  Age: 83 Year
  Sex: Female
  Weight: 60.33 kg

DRUGS (11)
  1. CALCIUM 600 MG + D3 [Concomitant]
  2. FLAXSEED [Concomitant]
     Active Substance: FLAX SEED
  3. ASPIRIN. [Concomitant]
     Active Substance: ASPIRIN
  4. VYTORIN [Concomitant]
     Active Substance: EZETIMIBE\SIMVASTATIN
  5. BIOTIN [Concomitant]
     Active Substance: BIOTIN
  6. VITAMIN B12 [Concomitant]
     Active Substance: CYANOCOBALAMIN
  7. VALSARTAN. [Concomitant]
     Active Substance: VALSARTAN
  8. VITAMIN E [Concomitant]
     Active Substance: .ALPHA.-TOCOPHEROL
  9. LEVAQUIN [Concomitant]
     Active Substance: LEVOFLOXACIN
  10. HYDROCODONE, ACETAMINOPHEN [Suspect]
     Active Substance: ACETAMINOPHEN\HYDROCODONE BITARTRATE
     Indication: PAIN
     Dosage: 5-325 MG TAB?1/2 TO 1 TAB EVERY 6 HRS. FOR 10 DAYS?2WK 1/2-1 TAB EVERY 6 HRS. ?MOUTH
     Route: 048
     Dates: start: 20140920, end: 20140921
  11. CELEBREX [Concomitant]
     Active Substance: CELECOXIB

REACTIONS (3)
  - Constipation [None]
  - Pruritus [None]
  - Nausea [None]

NARRATIVE: CASE EVENT DATE: 20140920
